FAERS Safety Report 7000362-5 (Version None)
Quarter: 2010Q3

REPORT INFORMATION
  Report Type: 
  Country: None (occurrence: None)
  Receive Date: 20100920
  Receipt Date: 20100412
  Transmission Date: 20110219
  Serious: Yes (Other)
  Sender: FDA-Public Use
  Company Number: US-ASTRAZENECA-2009UW16925

PATIENT
  Age: 10996 Day
  Sex: Male

DRUGS (2)
  1. SEROQUEL [Suspect]
     Dosage: 1 Q AM  AND 4 QHS
     Route: 048
     Dates: start: 20010102
  2. CELEXA [Concomitant]
     Dosage: 20 MG TO 30 MG
     Dates: start: 20010102

REACTIONS (2)
  - DIABETES MELLITUS [None]
  - KETOACIDOSIS [None]
